FAERS Safety Report 8681278 (Version 3)
Quarter: 2012Q4

REPORT INFORMATION
  Report Type: 
  Country: BR (occurrence: BR)
  Receive Date: 20120725
  Receipt Date: 20121115
  Transmission Date: 20130627
  Serious: Yes (Other)
  Sender: FDA-Public Use
  Company Number: BR-RANBAXY-2012R5-58055

PATIENT
  Age: 83 None
  Sex: Male
  Weight: 78 kg

DRUGS (4)
  1. OXCARBAZEPINE [Suspect]
     Indication: TRANSIENT ISCHAEMIC ATTACK
     Dosage: 300 mg, bid
     Route: 048
     Dates: start: 201104, end: 20120709
  2. LOSARTAN [Concomitant]
     Indication: HYPERTENSION
     Dosage: 50 mg, bid
     Route: 065
  3. ATENOLOL [Concomitant]
     Indication: HYPERTENSION
     Dosage: 50 mg, bid
     Route: 065
  4. PHENOBARBITOL [Concomitant]
     Indication: CONVULSION
     Dosage: 100 mg, bid
     Route: 065

REACTIONS (5)
  - Therapeutic response decreased [Unknown]
  - Head injury [Recovered/Resolved]
  - Headache [Recovered/Resolved]
  - Cerebral haematoma [Recovered/Resolved]
  - Off label use [Not Recovered/Not Resolved]
